FAERS Safety Report 9417383 (Version 1)
Quarter: 2013Q3

REPORT INFORMATION
  Report Type: Spontaneous
  Country: US (occurrence: US)
  Receive Date: 20130724
  Receipt Date: 20130724
  Transmission Date: 20140515
  Serious: No
  Sender: FDA-Public Use
  Company Number: US-BRISTOL-MYERS SQUIBB COMPANY-18834119

PATIENT
  Age: 81 Year
  Sex: Male
  Weight: 99.77 kg

DRUGS (2)
  1. ELIQUIS [Suspect]
  2. WARFARIN [Concomitant]
     Indication: ATRIAL FIBRILLATION

REACTIONS (1)
  - International normalised ratio decreased [Unknown]
